FAERS Safety Report 24733995 (Version 1)
Quarter: 2024Q4

REPORT INFORMATION
  Report Type: Spontaneous
  Country: SK (occurrence: SK)
  Receive Date: 20241214
  Receipt Date: 20241214
  Transmission Date: 20250115
  Serious: Yes (Other)
  Sender: TEVA
  Company Number: SK-TEVA-VS-3275084

PATIENT
  Age: 42 Year
  Sex: Female

DRUGS (1)
  1. PALIPERIDONE [Suspect]
     Active Substance: PALIPERIDONE
     Indication: Schizophrenia
     Dosage: FOR A YEAR, SUS IJP
     Route: 030

REACTIONS (2)
  - Depressive symptom [Unknown]
  - Anxiety [Unknown]
